FAERS Safety Report 4408644-8 (Version None)
Quarter: 2004Q3

REPORT INFORMATION
  Report Type: 
  Country: None (occurrence: None)
  Receive Date: 20040723
  Receipt Date: 20040725
  Transmission Date: 20050211
  Serious: Yes (Hospitalization)
  Sender: FDA-Public Use
  Company Number: DRON00204002336

PATIENT
  Age: 49 Year
  Sex: Male
  Weight: 79 kg

DRUGS (8)
  1. MARINOL [Suspect]
     Indication: MULTIPLE SCLEROSIS
     Dosage: 8 DF DAILY PO
     Route: 048
     Dates: start: 20010612
  2. MARINOL [Suspect]
     Indication: MUSCLE SPASTICITY
     Dosage: 8 DF DAILY PO
     Route: 048
     Dates: start: 20010612
  3. BACLOFEN [Concomitant]
  4. PROPRANOLOL [Concomitant]
  5. PROZAC [Concomitant]
  6. QUININE SULFATE [Concomitant]
  7. ZOPICLONE [Concomitant]
  8. TOLTERODINE [Concomitant]

REACTIONS (2)
  - MULTIPLE SCLEROSIS RELAPSE [None]
  - URINARY TRACT INFECTION [None]
